FAERS Safety Report 24849684 (Version 1)
Quarter: 2025Q1

REPORT INFORMATION
  Report Type: Spontaneous
  Country: US (occurrence: US)
  Receive Date: 20250116
  Receipt Date: 20250116
  Transmission Date: 20250409
  Serious: No
  Sender: Harrow Health
  Company Number: US-IMP-2025000026

PATIENT
  Age: 67 Year
  Sex: Female

DRUGS (1)
  1. VEVYE [Suspect]
     Active Substance: CYCLOSPORINE
     Indication: Product used for unknown indication
     Route: 047
     Dates: start: 20240322, end: 20250101

REACTIONS (2)
  - Instillation site irritation [Unknown]
  - Periorbital irritation [Unknown]

NARRATIVE: CASE EVENT DATE: 20240322
